FAERS Safety Report 13843685 (Version 1)
Quarter: 2017Q3

REPORT INFORMATION
  Report Type: Spontaneous
  Country: US (occurrence: US)
  Receive Date: 20170808
  Receipt Date: 20170808
  Transmission Date: 20171127
  Serious: No
  Sender: FDA-Public Use
  Company Number: None

PATIENT

DRUGS (2)
  1. POTASSIUM CHLORIDE INJECTION (CONCENTRA TE) [Suspect]
     Active Substance: POTASSIUM CHLORIDE
  2. HEPARIN SOD. INJECTION 20,000 UNITS/ML HEPARIN SODIUM [Suspect]
     Active Substance: HEPARIN SODIUM

REACTIONS (2)
  - Product label on wrong product [None]
  - Product label confusion [None]
